FAERS Safety Report 8151619-6 (Version None)
Quarter: 2012Q1

REPORT INFORMATION
  Report Type: 
  Country: None (occurrence: None)
  Receive Date: 20120220
  Receipt Date: 20120209
  Transmission Date: 20120608
  Serious: No
  Sender: FDA-Public Use
  Company Number: US-B.I. PHARMACEUTICALS,INC./RIDGEFIELD-2012-BP-02559BP

PATIENT
  Age: 79 Year
  Sex: Female

DRUGS (2)
  1. OCUVITE DRY EYE [Concomitant]
     Indication: CATARACT
  2. ZANTAC 150 [Suspect]
     Indication: HYPERCHLORHYDRIA
     Route: 048

REACTIONS (1)
  - DRUG INEFFECTIVE [None]
